FAERS Safety Report 8927393 (Version 1)
Quarter: 2012Q4

REPORT INFORMATION
  Report Type: 
  Country: GB (occurrence: GB)
  Receive Date: 20121127
  Receipt Date: 20121127
  Transmission Date: 20130627
  Serious: Yes (Life-Threatening)
  Sender: FDA-Public Use
  Company Number: GB-ASTRAZENECA-2012SE88628

PATIENT
  Age: 8766 Day
  Sex: Male
  Weight: 61 kg

DRUGS (7)
  1. MEROPENEM [Suspect]
     Indication: LOWER RESPIRATORY TRACT INFECTION
     Route: 042
     Dates: start: 20121109, end: 20121109
  2. AZITHROMYCIN [Concomitant]
  3. CODEINE [Concomitant]
  4. ENOXAPARIN [Concomitant]
     Indication: THROMBOSIS PROPHYLAXIS
  5. PARACETAMOL [Concomitant]
     Route: 042
  6. SALBUTAMOL [Concomitant]
  7. TAZOCIN [Concomitant]
     Route: 042

REACTIONS (1)
  - Anaphylactic reaction [Recovering/Resolving]
